FAERS Safety Report 4661882-1 (Version None)
Quarter: 2005Q2

REPORT INFORMATION
  Report Type: 
  Country: None (occurrence: None)
  Receive Date: 20050513
  Receipt Date: 20050509
  Transmission Date: 20051028
  Serious: Yes (Life-Threatening, Hospitalization, Disabling)
  Sender: FDA-Public Use
  Company Number: US-MERCK-0505USA01013

PATIENT
  Age: 77 Year
  Sex: Male

DRUGS (7)
  1. ZOCOR [Suspect]
     Indication: BLOOD CHOLESTEROL INCREASED
     Route: 048
     Dates: start: 20030101, end: 20050101
  2. COREG [Concomitant]
     Route: 065
  3. NEPHRO-VITE RX [Concomitant]
     Route: 065
  4. GLIPIZIDE [Concomitant]
     Indication: DIABETES MELLITUS
     Route: 065
  5. LISINOPRIL [Concomitant]
     Route: 065
  6. [THERAPY UNSPECIFIED] [Concomitant]
     Route: 065
  7. OMEPRAZOLE [Concomitant]
     Route: 065

REACTIONS (2)
  - DYSPHAGIA [None]
  - MYALGIA [None]
